FAERS Safety Report 21955748 (Version 3)
Quarter: 2023Q2

REPORT INFORMATION
  Report Type: Spontaneous
  Country: JP (occurrence: JP)
  Receive Date: 20230206
  Receipt Date: 20230427
  Transmission Date: 20230722
  Serious: Yes (Death, Life-Threatening, Hospitalization, Other)
  Sender: FDA-Public Use
  Company Number: JP-BRISTOL-MYERS SQUIBB COMPANY-2023-014379

PATIENT
  Age: 71 Year
  Sex: Male
  Weight: 62.3 kg

DRUGS (20)
  1. YERVOY [Suspect]
     Active Substance: IPILIMUMAB
     Indication: Non-small cell lung cancer
     Route: 041
     Dates: start: 20221101, end: 20221101
  2. YERVOY [Suspect]
     Active Substance: IPILIMUMAB
     Route: 041
     Dates: start: 20221125, end: 20221125
  3. YERVOY [Suspect]
     Active Substance: IPILIMUMAB
     Route: 041
  4. OPDIVO [Suspect]
     Active Substance: NIVOLUMAB
     Indication: Non-small cell lung cancer
     Route: 041
     Dates: start: 20221101, end: 20221101
  5. OPDIVO [Suspect]
     Active Substance: NIVOLUMAB
     Route: 041
     Dates: start: 20221125, end: 20221125
  6. OPDIVO [Suspect]
     Active Substance: NIVOLUMAB
     Route: 041
  7. CARBOPLATIN [Suspect]
     Active Substance: CARBOPLATIN
     Indication: Non-small cell lung cancer
     Dates: start: 20221101, end: 20221101
  8. CARBOPLATIN [Suspect]
     Active Substance: CARBOPLATIN
     Dates: start: 20221125, end: 20221125
  9. PEMETREXED [Suspect]
     Active Substance: PEMETREXED
     Indication: Non-small cell lung cancer
     Dates: start: 20221101, end: 20221101
  10. PEMETREXED [Suspect]
     Active Substance: PEMETREXED
     Dates: start: 20221125, end: 20221125
  11. GANCICLOVIR [Suspect]
     Active Substance: GANCICLOVIR
     Indication: Cytomegalovirus enterocolitis
     Route: 041
     Dates: start: 20221216, end: 20230103
  12. GANCICLOVIR [Suspect]
     Active Substance: GANCICLOVIR
     Route: 041
     Dates: start: 20230220, end: 20230227
  13. PENTAZOCINE [Concomitant]
     Active Substance: PENTAZOCINE
     Indication: Product used for unknown indication
     Route: 041
  14. TELMISARTAN [Concomitant]
     Active Substance: TELMISARTAN
     Indication: Hypertension
     Route: 048
  15. AMLODIPINE [Concomitant]
     Active Substance: AMLODIPINE BESYLATE
     Indication: Hypertension
     Route: 048
  16. TADALAFIL [Concomitant]
     Active Substance: TADALAFIL
     Indication: Benign prostatic hyperplasia
     Route: 048
  17. GLYCOPYRRONIUM\INDACATEROL [Concomitant]
     Active Substance: GLYCOPYRRONIUM\INDACATEROL
     Indication: Chronic obstructive pulmonary disease
     Dosage: 1 DOSE/DAY, 1 INHALATION
     Route: 055
  18. PROCATEROL HYDROCHLORIDE [Concomitant]
     Active Substance: PROCATEROL HYDROCHLORIDE
     Indication: Emphysema
     Dosage: DYSPNEA, 2 INHALATIONS
     Route: 055
  19. GASTER [Concomitant]
     Active Substance: FAMOTIDINE
     Indication: Prophylaxis
     Route: 048
  20. DICLOFENAC [Concomitant]
     Active Substance: DICLOFENAC
     Indication: Product used for unknown indication
     Dosage: 1 TABLET, AT THE TIME OF PAIN
     Route: 048

REACTIONS (18)
  - Cytokine storm [Recovering/Resolving]
  - Pulmonary haemorrhage [Fatal]
  - Immune-mediated enterocolitis [Not Recovered/Not Resolved]
  - Septic shock [Unknown]
  - Klebsiella sepsis [Recovering/Resolving]
  - Escherichia sepsis [Recovering/Resolving]
  - Disseminated intravascular coagulation [Recovering/Resolving]
  - Cytomegalovirus enterocolitis [Unknown]
  - Depression [Unknown]
  - Pneumothorax [Recovering/Resolving]
  - Neutropenia [Unknown]
  - Granulocytopenia [Fatal]
  - Febrile neutropenia [Fatal]
  - Hepatic steatosis [Unknown]
  - Pneumonia aspiration [Unknown]
  - Off label use [Unknown]
  - Enterocolitis bacterial [Unknown]
  - Neutrophil toxic granulation present [Unknown]

NARRATIVE: CASE EVENT DATE: 20221129
